FAERS Safety Report 5235337-X (Version None)
Quarter: 2007Q1

REPORT INFORMATION
  Report Type: 
  Country: None (occurrence: None)
  Receive Date: 20070212
  Receipt Date: 20070209
  Transmission Date: 20070707
  Serious: Yes (Hospitalization)
  Sender: FDA-Public Use
  Company Number: JP-BAYER-200710061BYL

PATIENT
  Age: 77 Year
  Sex: Male

DRUGS (7)
  1. ASPIRIN [Suspect]
     Indication: ISCHAEMIC CEREBRAL INFARCTION
     Route: 048
     Dates: start: 20060928
  2. WARFARIN SODIUM [Suspect]
     Route: 048
     Dates: start: 20061020
  3. GASTER D [Concomitant]
     Route: 048
     Dates: start: 20060928
  4. ADALAT [Concomitant]
     Route: 048
     Dates: start: 20060928
  5. ISOSORBIDE MONONITRATE [Concomitant]
     Route: 048
     Dates: start: 20060925
  6. NOVASTAN [Concomitant]
     Indication: ISCHAEMIC CEREBRAL INFARCTION
     Route: 041
     Dates: start: 20060928, end: 20061006
  7. NOVO HEPARIN [Concomitant]
     Route: 041
     Dates: start: 20061014, end: 20061027

REACTIONS (2)
  - CEREBRAL INFARCTION [None]
  - HAEMATOMA [None]
